FAERS Safety Report 22342808 (Version 2)
Quarter: 2023Q2

REPORT INFORMATION
  Report Type: Other
  Country: US (occurrence: None)
  Receive Date: 20230519
  Receipt Date: 20230525
  Transmission Date: 20230722
  Serious: Yes (Hospitalization)
  Sender: FDA-Public Use
  Company Number: US-ROCHE-3350202

PATIENT
  Age: 58 Year
  Sex: Male

DRUGS (1)
  1. HEMLIBRA [Suspect]
     Active Substance: EMICIZUMAB-KXWH
     Indication: Factor VIII deficiency
     Dosage: INJECT 210MG (1.4ML FROM 2X105MG VIALS) SUBCUTANEOUSLY EVERY 14 DAY(S)
     Route: 058
     Dates: start: 202209

REACTIONS (1)
  - Ill-defined disorder [Unknown]
